FAERS Safety Report 6348159-3 (Version None)
Quarter: 2009Q3

REPORT INFORMATION
  Report Type: 
  Country: None (occurrence: None)
  Receive Date: 20090910
  Receipt Date: 20090901
  Transmission Date: 20100115
  Serious: Yes (Hospitalization)
  Sender: FDA-Public Use
  Company Number: US-SANOFI-SYNTHELABO-A03200903293

PATIENT
  Sex: Male
  Weight: 73.5 kg

DRUGS (7)
  1. CAPECITABINE [Suspect]
     Indication: COLORECTAL CANCER
     Route: 048
     Dates: start: 20090414, end: 20090524
  2. ELOXATIN [Suspect]
     Indication: RECTAL CANCER METASTATIC
     Route: 042
     Dates: start: 20090101, end: 20090101
  3. ELOXATIN [Suspect]
     Route: 042
     Dates: start: 20090604, end: 20090604
  4. AVASTIN [Concomitant]
     Indication: DRUG USE FOR UNKNOWN INDICATION
     Dosage: UNK
     Route: 065
  5. FLOMAX [Concomitant]
     Indication: BENIGN PROSTATIC HYPERPLASIA
     Dosage: UNK
     Route: 065
  6. FLUOROURACIL [Suspect]
     Route: 065
     Dates: start: 20090101, end: 20090101
  7. LEUCOVORIN CALCIUM [Suspect]
     Route: 065
     Dates: start: 20090101, end: 20090101

REACTIONS (3)
  - ASTHENIA [None]
  - NEUROPATHY PERIPHERAL [None]
  - URINARY RETENTION [None]
